FAERS Safety Report 22977462 (Version 4)
Quarter: 2023Q4

REPORT INFORMATION
  Report Type: Spontaneous
  Country: US (occurrence: US)
  Receive Date: 20230925
  Receipt Date: 20231115
  Transmission Date: 20240109
  Serious: No
  Sender: FDA-Public Use
  Company Number: US-PFIZER INC-202300296713

PATIENT
  Age: 64 Year
  Sex: Male
  Weight: 74.4 kg

DRUGS (13)
  1. MORPHINE SULFATE [Suspect]
     Active Substance: MORPHINE SULFATE
     Indication: Pain
     Dosage: 4 MG EVERY 2 HOURS AS NEEDED
     Route: 042
     Dates: start: 20230804, end: 20230804
  2. MORPHINE SULFATE [Suspect]
     Active Substance: MORPHINE SULFATE
     Dosage: 4 MG EVERY 2 HOURS AS NEEDED
     Route: 042
     Dates: start: 20230807, end: 20230807
  3. MORPHINE [Suspect]
     Active Substance: MORPHINE
     Indication: Pain
     Dosage: 15MG TWICE A DAY
     Route: 048
     Dates: start: 20230815, end: 20230824
  4. AVELUMAB [Concomitant]
     Active Substance: AVELUMAB
     Indication: Pancreatic carcinoma metastatic
     Dosage: 800 MILLIGRAM, EVERY 2 WEEKS
     Route: 042
     Dates: start: 20230815
  5. PEPINEMAB [Concomitant]
     Active Substance: PEPINEMAB
     Indication: Pancreatic carcinoma metastatic
     Dosage: 1608 MILLIGRAM, EVERY 2 WEEKS
     Route: 042
     Dates: start: 20230815
  6. ACETAMINOPHEN [Concomitant]
     Active Substance: ACETAMINOPHEN
     Dosage: UNK
     Dates: start: 20221223
  7. CETIRIZINE [Concomitant]
     Active Substance: CETIRIZINE HYDROCHLORIDE
     Dosage: UNK
     Dates: start: 20230829
  8. INSULIN LISPRO [Concomitant]
     Active Substance: INSULIN LISPRO
     Dosage: UNK
     Dates: start: 20230714
  9. IRBESARTAN [Concomitant]
     Active Substance: IRBESARTAN
     Dosage: UNK
     Dates: start: 20230816
  10. OXYCONTIN [Concomitant]
     Active Substance: OXYCODONE HYDROCHLORIDE
     Dosage: 10 MG THREE TIMES ONLY DURING THE ADMISSION
     Dates: start: 20230829, end: 20230830
  11. PANTOPRAZOLE [Concomitant]
     Active Substance: PANTOPRAZOLE
     Dosage: UNK
     Dates: start: 20230829
  12. TRIAMCINOLONE [Concomitant]
     Active Substance: TRIAMCINOLONE
     Dosage: UNK
     Dates: start: 20230830
  13. ROXICODONE [Concomitant]
     Active Substance: OXYCODONE HYDROCHLORIDE
     Dosage: 5MG TAKEN DIFFERENTLY AT EVERY 4 TO 6 HOURS AS NEEDED
     Dates: start: 20230721

REACTIONS (2)
  - Rash pruritic [Recovered/Resolved]
  - Rash maculo-papular [Recovering/Resolving]

NARRATIVE: CASE EVENT DATE: 20230822
